FAERS Safety Report 5826225-6 (Version None)
Quarter: 2008Q3

REPORT INFORMATION
  Report Type: 
  Country: None (occurrence: None)
  Receive Date: 20080723
  Receipt Date: 20080715
  Transmission Date: 20090109
  Serious: Yes (Hospitalization)
  Sender: FDA-Public Use
  Company Number: PL-JNJFOC-20080505480

PATIENT
  Age: 68 Year
  Sex: Female

DRUGS (5)
  1. DECITABINE (DECITABINE) LYOPHILIZED POWDER [Suspect]
     Indication: ACUTE MYELOID LEUKAEMIA
     Dosage: 20 MG/M2, 1 IN 1 DAY, INTRAVENOUS
     Route: 042
     Dates: start: 20070227, end: 20080425
  2. CLINDAMYCIN HCL [Concomitant]
  3. TRAMADOL HCL [Concomitant]
  4. KETAORIFEN (ALL OTHER THERAPEUTIC PRODUCTS) [Concomitant]
  5. ETHACRIDINE LACTATE (ETHACRIDINE LACTATE) [Concomitant]

REACTIONS (2)
  - SOFT TISSUE INFECTION [None]
  - STAPHYLOCOCCAL INFECTION [None]
